FAERS Safety Report 23965219 (Version 1)
Quarter: 2024Q2

REPORT INFORMATION
  Report Type: Spontaneous
  Country: ZA (occurrence: ZA)
  Receive Date: 20240612
  Receipt Date: 20240612
  Transmission Date: 20240715
  Serious: Yes (Hospitalization, Other)
  Sender: FDA-Public Use
  Company Number: ZA-SAF-LIT/ZAF/24/0008376

PATIENT
  Age: 3 Decade
  Sex: Male

DRUGS (2)
  1. AMLODIPINE [Suspect]
     Active Substance: AMLODIPINE BESYLATE
     Indication: Product use in unapproved indication
  2. RISPERIDONE [Suspect]
     Active Substance: RISPERIDONE
     Indication: Product use in unapproved indication

REACTIONS (3)
  - Shock [Recovered/Resolved]
  - Overdose [Unknown]
  - Haemodynamic instability [Unknown]
